FAERS Safety Report 4933939-9 (Version None)
Quarter: 2006Q1

REPORT INFORMATION
  Report Type: 
  Country: None (occurrence: None)
  Receive Date: 20060301
  Receipt Date: 20060216
  Transmission Date: 20060701
  Serious: Yes (Hospitalization)
  Sender: FDA-Public Use
  Company Number: 2006024039

PATIENT
  Age: 20 Year
  Sex: Male
  Weight: 63.5036 kg

DRUGS (9)
  1. GEODON [Suspect]
     Indication: BIPOLAR DISORDER
     Dates: start: 20050401, end: 20050401
  2. GEODON [Suspect]
     Indication: MANIA
     Dates: start: 20050401, end: 20050401
  3. GEODON [Suspect]
     Indication: PSYCHOTIC DISORDER
     Dates: start: 20050401, end: 20050401
  4. LITHIUM (LITHIUM) [Suspect]
     Indication: ILL-DEFINED DISORDER
     Dates: start: 20050101
  5. ZYPREXA [Suspect]
     Indication: ILL-DEFINED DISORDER
     Dates: start: 20050101, end: 20050101
  6. ABILIFY [Suspect]
     Indication: ANXIETY
  7. SEROQUEL [Suspect]
     Indication: ILL-DEFINED DISORDER
     Dates: start: 20050101
  8. RISPERIDONE [Concomitant]
  9. DEPAKOTE [Concomitant]

REACTIONS (13)
  - ABASIA [None]
  - ABNORMAL BEHAVIOUR [None]
  - ANXIETY [None]
  - CRYING [None]
  - DEPRESSED LEVEL OF CONSCIOUSNESS [None]
  - DEPRESSED MOOD [None]
  - DRUG INTOLERANCE [None]
  - FEELING ABNORMAL [None]
  - GAIT DISTURBANCE [None]
  - NUCLEAR MAGNETIC RESONANCE IMAGING ABNORMAL [None]
  - SCAR [None]
  - SOMNOLENCE [None]
  - SUICIDAL IDEATION [None]
